FAERS Safety Report 9267124 (Version 1)
Quarter: 2013Q2

REPORT INFORMATION
  Report Type: Spontaneous
  Country: US (occurrence: US)
  Receive Date: 20130502
  Receipt Date: 20130502
  Transmission Date: 20140414
  Serious: Yes (Hospitalization)
  Sender: FDA-Public Use
  Company Number: US-ROCHE-1217176

PATIENT
  Age: 48 Year
  Sex: Male

DRUGS (10)
  1. RITUXIMAB [Suspect]
     Indication: TRANSPLANT REJECTION
     Route: 065
  2. MYCOPHENOLATE MOFETIL [Suspect]
     Indication: TRANSPLANT REJECTION
     Route: 065
     Dates: start: 2002
  3. MYCOPHENOLATE MOFETIL [Suspect]
     Route: 065
  4. TACROLIMUS [Suspect]
     Indication: TRANSPLANT REJECTION
     Route: 065
  5. TACROLIMUS [Suspect]
     Dosage: GOAL 10-12 MG/DL
     Route: 065
  6. TACROLIMUS [Suspect]
     Dosage: DOSE REDUCED
     Route: 065
  7. CYCLOSPORINE [Concomitant]
     Route: 065
  8. PREDNISONE [Concomitant]
     Route: 065
  9. PREDNISONE [Concomitant]
     Route: 065
  10. PREDNISONE [Concomitant]
     Route: 065

REACTIONS (1)
  - Progressive multifocal leukoencephalopathy [Unknown]
